FAERS Safety Report 9714513 (Version 1)
Quarter: 2013Q4

REPORT INFORMATION
  Report Type: Report from Study
  Country: JP (occurrence: JP)
  Receive Date: 20131126
  Receipt Date: 20131126
  Transmission Date: 20140711
  Serious: Yes (Other)
  Sender: FDA-Public Use
  Company Number: JP-TAKEDA-2013TJP003062

PATIENT
  Age: 71 Year
  Sex: Male
  Weight: 65 kg

DRUGS (5)
  1. LANSOPRAZOLE [Suspect]
     Indication: PROPHYLAXIS AGAINST GASTROINTESTINAL ULCER
     Dosage: 15 MG, QD
     Route: 050
     Dates: start: 20120926, end: 20130320
  2. BAYASPIRIN [Concomitant]
     Indication: THROMBOSIS PROPHYLAXIS
     Dosage: 100 MG,1 DAYS
     Route: 050
     Dates: end: 20130429
  3. E KEPPRA [Concomitant]
     Dosage: 2000 MG, 1 DAYS
     Route: 050
  4. CEREB                              /00228502/ [Concomitant]
     Dosage: 24 MG, 1 DAYS
     Route: 050
  5. PLAVIX [Concomitant]
     Dosage: 75 MG, 1 DAYS
     Route: 050

REACTIONS (2)
  - Convulsion [Recovering/Resolving]
  - Condition aggravated [Recovering/Resolving]
